FAERS Safety Report 9762323 (Version 1)
Quarter: 2013Q4

REPORT INFORMATION
  Report Type: Spontaneous
  Country: US (occurrence: US)
  Receive Date: 20131216
  Receipt Date: 20131216
  Transmission Date: 20140711
  Serious: No
  Sender: FDA-Public Use
  Company Number: US-BIOGENIDEC-2013BI102951

PATIENT
  Sex: Female

DRUGS (10)
  1. TECFIDERA [Suspect]
     Indication: MULTIPLE SCLEROSIS
     Route: 048
     Dates: start: 20130829
  2. HUMULIN N [Concomitant]
  3. DETROL LA [Concomitant]
  4. ROPINIROLE HCL [Concomitant]
  5. LEVEMIR [Concomitant]
  6. NEXIUM [Concomitant]
  7. LEVOTHYROXINE [Concomitant]
  8. HYDROXYZINE HCL [Concomitant]
  9. FISH OIL [Concomitant]
  10. CVS VITAMIN D [Concomitant]

REACTIONS (2)
  - Blood glucose increased [Unknown]
  - Abdominal discomfort [Unknown]
